FAERS Safety Report 5775124-7 (Version None)
Quarter: 2008Q2

REPORT INFORMATION
  Report Type: 
  Country: None (occurrence: None)
  Receive Date: 20080617
  Receipt Date: 20080606
  Transmission Date: 20081010
  Serious: Yes (Hospitalization)
  Sender: FDA-Public Use
  Company Number: AU-NOVOPROD-276092

PATIENT
  Age: 23 Week
  Weight: 0.603 kg

DRUGS (1)
  1. NOVOSEVEN [Suspect]
     Indication: HAEMORRHAGE
     Dosage: 300 UG/KG, 2 TIMES
     Route: 042

REACTIONS (1)
  - ISCHAEMIA [None]
